FAERS Safety Report 13946784 (Version 1)
Quarter: 2017Q3

REPORT INFORMATION
  Report Type: Spontaneous
  Country: US (occurrence: US)
  Receive Date: 20170907
  Receipt Date: 20170907
  Transmission Date: 20171128
  Serious: No
  Sender: FDA-Public Use
  Company Number: US-PFIZER INC-2017383367

PATIENT
  Age: 59 Year
  Sex: Female
  Weight: 72.57 kg

DRUGS (4)
  1. VENLAFAXINE HCL [Suspect]
     Active Substance: VENLAFAXINE HYDROCHLORIDE
     Indication: HOT FLUSH
     Dosage: 75 MG, 1X/DAY
     Route: 048
     Dates: start: 2017, end: 20170831
  2. CALCITRATE [Concomitant]
     Active Substance: CALCIUM CITRATE
     Indication: VITAMIN D DECREASED
     Dosage: 800 MG, 2X/DAY (2 TABLETS IN THE MORNING AND 2 TABLETS IN THE EVENING)
     Dates: start: 201701
  3. TAMOXIFEN [Concomitant]
     Active Substance: TAMOXIFEN
     Indication: HORMONE SUPPRESSION THERAPY
     Dosage: 20 MG, 1X/DAY
     Route: 048
     Dates: start: 201702
  4. VITAMIN D [Concomitant]
     Active Substance: CHOLECALCIFEROL
     Indication: VITAMIN D DECREASED
     Dosage: 1000 IU, 2X/DAY 800 MG, 2X/DAY (2 TABLETS IN THE MORNING AND 2 TABLETS IN THE EVENING)
     Dates: start: 201701

REACTIONS (4)
  - Depression [Not Recovered/Not Resolved]
  - Drug ineffective for unapproved indication [Unknown]
  - Condition aggravated [Not Recovered/Not Resolved]
  - Feeling abnormal [Unknown]

NARRATIVE: CASE EVENT DATE: 201707
